FAERS Safety Report 5989142-7 (Version None)
Quarter: 2008Q4

REPORT INFORMATION
  Report Type: 
  Country: None (occurrence: None)
  Receive Date: 20081204
  Receipt Date: 20081128
  Transmission Date: 20090506
  Serious: Yes (Hospitalization)
  Sender: FDA-Public Use
  Company Number: T06-JPN-01007-01

PATIENT
  Age: 65 Year
  Sex: Female
  Weight: 51.5 kg

DRUGS (5)
  1. MEMANTINE HCL [Suspect]
     Indication: DEMENTIA ALZHEIMER'S TYPE
     Dosage: 20 MG (20 MG, 1 IN 1 D), ORAL
     Route: 048
     Dates: start: 20060216, end: 20060705
  2. PRAVASTATIN SODIUM [Concomitant]
  3. FLUVOXAMINE MALEATE (FLUVOXAMINE MALEATE) (FLUVOXAMINE MALEATE) [Concomitant]
  4. FLUTICASONE PROPIONATE (FLUTICASONE PROPIONATE) (INHALANT) (FLUTICASON [Concomitant]
  5. PROCATEROL HYDROCHLORIDE (PROCATEROL HYDROCHLORIDE) (INHALANT) (PROCAT [Concomitant]

REACTIONS (10)
  - BLOOD CREATINE PHOSPHOKINASE INCREASED [None]
  - BODY TEMPERATURE INCREASED [None]
  - CHOKING [None]
  - FALL [None]
  - IMMOBILE [None]
  - MUSCLE RIGIDITY [None]
  - PALLOR [None]
  - PNEUMONIA ASPIRATION [None]
  - TREMOR [None]
  - WHITE BLOOD CELL COUNT INCREASED [None]
